FAERS Safety Report 20049308 (Version 1)
Quarter: 2021Q4

REPORT INFORMATION
  Report Type: Spontaneous
  Country: US (occurrence: None)
  Receive Date: 20211109
  Receipt Date: 20211109
  Transmission Date: 20220303
  Serious: Yes (Disabling)
  Sender: FDA-Public Use
  Company Number: None

PATIENT
  Age: 32 Year
  Sex: Female
  Weight: 73.8 kg

DRUGS (1)
  1. GADAVIST [Suspect]
     Active Substance: GADOBUTROL
     Indication: Magnetic resonance imaging head
     Dosage: OTHER FREQUENCY : ONE INJECTION;?
     Route: 042
     Dates: start: 20211001, end: 20211001

REACTIONS (9)
  - Contrast media reaction [None]
  - Asthenia [None]
  - Headache [None]
  - Skin disorder [None]
  - Bone pain [None]
  - Arthralgia [None]
  - Skin burning sensation [None]
  - Vitreous floaters [None]
  - Depressed level of consciousness [None]

NARRATIVE: CASE EVENT DATE: 20211001
